FAERS Safety Report 6059155-8 (Version None)
Quarter: 2009Q1

REPORT INFORMATION
  Report Type: 
  Country: None (occurrence: None)
  Receive Date: 20090130
  Receipt Date: 20081217
  Transmission Date: 20090719
  Serious: Yes (Other)
  Sender: FDA-Public Use
  Company Number: US-PFIZER INC-2008157409

PATIENT
  Sex: Female
  Weight: 52.154 kg

DRUGS (9)
  1. LYRICA [Suspect]
     Indication: FIBROMYALGIA
     Dosage: 150 MG, 2X/DAY
     Dates: start: 20081023, end: 20081204
  2. METHADONE [Concomitant]
     Dosage: UNK
  3. RESTYL [Concomitant]
     Dosage: UNK
  4. MAXALT [Concomitant]
     Dosage: UNK
  5. FIORICET [Concomitant]
     Dosage: UNK
  6. ACETAMINOPHEN [Concomitant]
     Dosage: UNK
  7. PHENERGAN HCL [Concomitant]
     Dosage: UNK
  8. ATIVAN [Concomitant]
     Dosage: UNK
  9. CAFFEINE [Concomitant]
     Dosage: UNK

REACTIONS (1)
  - CONVULSION [None]
